FAERS Safety Report 11781685 (Version 1)
Quarter: 2015Q4

REPORT INFORMATION
  Report Type: Spontaneous
  Country: US (occurrence: US)
  Receive Date: 20151126
  Receipt Date: 20151126
  Transmission Date: 20160305
  Serious: No
  Sender: FDA-Public Use
  Company Number: US-ELI_LILLY_AND_COMPANY-US201511000008

PATIENT
  Sex: Male

DRUGS (1)
  1. AXIRON [Suspect]
     Active Substance: TESTOSTERONE
     Indication: BLOOD TESTOSTERONE DECREASED
     Dosage: 120 MG, QD
     Route: 061
     Dates: start: 201508, end: 201508

REACTIONS (2)
  - Application site irritation [Unknown]
  - Application site pain [Unknown]
